FAERS Safety Report 18028348 (Version 2)
Quarter: 2020Q3

REPORT INFORMATION
  Report Type: Spontaneous
  Country: NO (occurrence: NO)
  Receive Date: 20200715
  Receipt Date: 20200723
  Transmission Date: 20201103
  Serious: Yes (Hospitalization, Disabling)
  Sender: FDA-Public Use
  Company Number: NO-MYLANLABS-2020M1064889

PATIENT
  Sex: Female

DRUGS (3)
  1. CLOZAPINE. [Suspect]
     Active Substance: CLOZAPINE
     Indication: PRODUCT USED FOR UNKNOWN INDICATION
     Dosage: 325 MG SPRING 2019
     Route: 065
     Dates: start: 2019
  2. SOBRIL [Concomitant]
     Active Substance: OXAZEPAM
     Indication: PRODUCT USED FOR UNKNOWN INDICATION
     Dosage: 15?25 MG IN THE EVENING PERIODICALLY
     Route: 048
  3. CLOZAPINE. [Suspect]
     Active Substance: CLOZAPINE
     Dosage: 275 MG FROM FEBRUARY 2020
     Route: 065
     Dates: start: 202002

REACTIONS (6)
  - Nausea [Recovering/Resolving]
  - Constipation [Recovering/Resolving]
  - Gastrointestinal pain [Recovering/Resolving]
  - Vomiting [Recovering/Resolving]
  - Peritonitis [Recovering/Resolving]
  - Gastrointestinal mucosal necrosis [Recovering/Resolving]

NARRATIVE: CASE EVENT DATE: 2019
